FAERS Safety Report 4744279-5 (Version None)
Quarter: 2005Q3

REPORT INFORMATION
  Report Type: 
  Country: None (occurrence: None)
  Receive Date: 20050809
  Receipt Date: 20050727
  Transmission Date: 20060218
  Serious: Yes (Hospitalization)
  Sender: FDA-Public Use
  Company Number: 216160

PATIENT
  Age: 54 Year
  Sex: Female
  Weight: 82 kg

DRUGS (3)
  1. MABTHERA           (RITUXIMAB) [Suspect]
     Indication: CHRONIC LYMPHOCYTIC LEUKAEMIA
     Dosage: 500 MG, DAY 1-3, INTRAVENOUS
     Route: 042
     Dates: start: 20050511
  2. FLUDARABINE PHOSPHATE [Suspect]
     Indication: CHRONIC LYMPHOCYTIC LEUKAEMIA
     Dosage: 25 MG, DAY 1-3, INTRAVENOUS
     Route: 042
     Dates: start: 20050512
  3. CYCLOPHOSPHAMIDE [Suspect]
     Indication: CHRONIC LYMPHOCYTIC LEUKAEMIA
     Dosage: 250 MG, DAY 1-3, INTRAVENOUS
     Route: 042
     Dates: start: 20050512

REACTIONS (4)
  - C-REACTIVE PROTEIN INCREASED [None]
  - DIARRHOEA [None]
  - FEBRILE NEUTROPENIA [None]
  - LABORATORY TEST ABNORMAL [None]
